FAERS Safety Report 4399754-2 (Version None)
Quarter: 2004Q2

REPORT INFORMATION
  Report Type: 
  Country: None (occurrence: None)
  Receive Date: 20040608
  Receipt Date: 20040329
  Transmission Date: 20050107
  Serious: No
  Sender: FDA-Public Use
  Company Number: FROV000180

PATIENT
  Age: 38 Year
  Sex: Female

DRUGS (1)
  1. FROVA [Suspect]
     Indication: MIGRAINE
     Dosage: 2.5 MG ORAL
     Route: 048
     Dates: start: 20040327

REACTIONS (4)
  - ALTERED VISUAL DEPTH PERCEPTION [None]
  - DIZZINESS [None]
  - DRY MOUTH [None]
  - SPEECH DISORDER [None]
